FAERS Safety Report 5118350-2 (Version None)
Quarter: 2006Q3

REPORT INFORMATION
  Report Type: 
  Country: None (occurrence: None)
  Receive Date: 20060927
  Receipt Date: 20060908
  Transmission Date: 20061208
  Serious: Yes (Life-Threatening, Hospitalization)
  Sender: FDA-Public Use
  Company Number: 2006-07-0094

PATIENT
  Age: 27 Year
  Sex: Female
  Weight: 61 kg

DRUGS (6)
  1. PEG-INTRON [Suspect]
     Indication: HEPATITIS C
     Dosage: 100 + 80 + 60 MCG;/WK; SC
     Route: 058
     Dates: start: 20060130, end: 20060523
  2. PEG-INTRON [Suspect]
     Indication: HEPATITIS C
     Dosage: 100 + 80 + 60 MCG;/WK; SC
     Route: 058
     Dates: start: 20060530, end: 20060530
  3. PEG-INTRON [Suspect]
     Indication: HEPATITIS C
     Dosage: 100 + 80 + 60 MCG;/WK; SC
     Route: 058
     Dates: start: 20060606, end: 20060606
  4. REBETOL [Suspect]
     Indication: HEPATITIS C
     Dosage: 600 MG; UNKNOWN; PO
     Route: 048
     Dates: start: 20060130, end: 20060605
  5. INCREMIN (CON.) [Concomitant]
  6. SODIUM FERROUS CITRATE (CON.) [Concomitant]

REACTIONS (3)
  - HEPATIC ENCEPHALOPATHY [None]
  - HEPATIC FAILURE [None]
  - HEPATITIS FULMINANT [None]
